FAERS Safety Report 24381461 (Version 1)
Quarter: 2024Q4

REPORT INFORMATION
  Report Type: Spontaneous
  Country: CA (occurrence: CA)
  Receive Date: 20241001
  Receipt Date: 20241001
  Transmission Date: 20250114
  Serious: Yes (Other)
  Sender: UNITED THERAPEUTICS
  Company Number: CA-UNITED THERAPEUTICS-UNT-2024-029059

PATIENT
  Sex: Female

DRUGS (1)
  1. REMODULIN [Suspect]
     Active Substance: TREPROSTINIL
     Indication: Pulmonary arterial hypertension
     Dosage: UNK, CONTINUING

REACTIONS (3)
  - Atrial fibrillation [Unknown]
  - Hyperthyroidism [Unknown]
  - Infusion site infection [Unknown]
